FAERS Safety Report 20086600 (Version 1)
Quarter: 2021Q4

REPORT INFORMATION
  Report Type: Spontaneous
  Country: US (occurrence: US)
  Receive Date: 20211118
  Receipt Date: 20211118
  Transmission Date: 20220303
  Serious: Yes (Death, Hospitalization, Other)
  Sender: FDA-Public Use
  Company Number: US-AMGEN-USASP2021177535

PATIENT

DRUGS (3)
  1. DARBEPOETIN ALFA [Suspect]
     Active Substance: DARBEPOETIN ALFA
     Indication: Anaemia
     Dosage: UNK
     Route: 058
  2. EPOETIN ALFA [Suspect]
     Active Substance: ERYTHROPOIETIN
     Indication: Anaemia
     Dosage: UNK
     Route: 042
  3. IRON [Concomitant]
     Active Substance: IRON
     Route: 042

REACTIONS (50)
  - Death [Fatal]
  - Cardiac failure [Fatal]
  - Deep vein thrombosis [Fatal]
  - Myocardial infarction [Fatal]
  - Pulmonary embolism [Fatal]
  - Vascular access site thrombosis [Fatal]
  - Cerebrovascular accident [Fatal]
  - Rheumatoid arthritis [Unknown]
  - Retinopathy proliferative [Unknown]
  - Macular oedema [Unknown]
  - Choroidal neovascularisation [Unknown]
  - Erosive oesophagitis [Unknown]
  - Gastritis erosive [Unknown]
  - Atrial fibrillation [Unknown]
  - Pulmonary arterial hypertension [Unknown]
  - Anaemia [Unknown]
  - Cardiomyopathy [Unknown]
  - Hyperkalaemia [Unknown]
  - Peritonitis [Unknown]
  - Sepsis [Unknown]
  - Acute myocardial infarction [Unknown]
  - Thrombosis [Unknown]
  - Pneumonia [Unknown]
  - Neoplasm malignant [Fatal]
  - Hypervolaemia [Unknown]
  - Arteriovenous fistula thrombosis [Unknown]
  - Bronchitis [Unknown]
  - Vomiting [Unknown]
  - Neoplasm progression [Unknown]
  - Arteriovenous fistula site complication [Unknown]
  - Pain in extremity [Unknown]
  - Dyspnoea [Unknown]
  - Pyrexia [Unknown]
  - Therapy partial responder [Unknown]
  - Dialysis hypotension [Unknown]
  - Ischaemia [Unknown]
  - Disease recurrence [Unknown]
  - Coronary artery disease [Unknown]
  - Hypotension [Unknown]
  - Hypertension [Unknown]
  - Upper respiratory tract infection [Unknown]
  - Urinary tract infection [Unknown]
  - Nasopharyngitis [Unknown]
  - Diarrhoea [Unknown]
  - Nausea [Unknown]
  - Arthralgia [Unknown]
  - Cough [Unknown]
  - Back pain [Unknown]
  - Headache [Unknown]
  - Fall [Unknown]
